FAERS Safety Report 13418721 (Version 2)
Quarter: 2017Q2

REPORT INFORMATION
  Report Type: Spontaneous
  Country: MX (occurrence: MX)
  Receive Date: 20170406
  Receipt Date: 20170427
  Transmission Date: 20170830
  Serious: Yes (Other)
  Sender: FDA-Public Use
  Company Number: MX-BAXTER-2017BAX014277

PATIENT

DRUGS (6)
  1. SVOFAST [Suspect]
     Active Substance: SEVOFLURANE
     Dosage: DOSE INCREASED
     Route: 055
     Dates: end: 201702
  2. VECURONIO [Suspect]
     Active Substance: VECURONIUM BROMIDE
     Indication: ANAESTHESIA PROCEDURE
     Dosage: 100 MCG X KG
     Route: 065
     Dates: start: 201702, end: 201702
  3. FENTANYL. [Suspect]
     Active Substance: FENTANYL
     Indication: ANAESTHESIA PROCEDURE
     Dosage: 10 MCG X KG
     Route: 065
     Dates: start: 201702, end: 201702
  4. DIAZEPAM. [Suspect]
     Active Substance: DIAZEPAM
     Indication: ANAESTHESIA PROCEDURE
     Route: 065
     Dates: start: 201702, end: 201702
  5. SVOFAST [Suspect]
     Active Substance: SEVOFLURANE
     Indication: ANAESTHESIA PROCEDURE
     Route: 055
     Dates: start: 201702
  6. PROPOFOL. [Suspect]
     Active Substance: PROPOFOL
     Indication: ANAESTHESIA PROCEDURE
     Route: 065
     Dates: start: 201702, end: 201702

REACTIONS (4)
  - Poor quality drug administered [Unknown]
  - Unwanted awareness during anaesthesia [Recovered/Resolved]
  - Drug effect decreased [Recovered/Resolved]
  - Product odour abnormal [Unknown]

NARRATIVE: CASE EVENT DATE: 201702
